FAERS Safety Report 5448895-7 (Version None)
Quarter: 2007Q3

REPORT INFORMATION
  Report Type: 
  Country: None (occurrence: None)
  Receive Date: 20070911
  Receipt Date: 20070822
  Transmission Date: 20080115
  Serious: No
  Sender: FDA-Public Use
  Company Number: US-BRISTOL-MYERS SQUIBB COMPANY-13885553

PATIENT
  Sex: Female

DRUGS (1)
  1. EMSAM [Suspect]

REACTIONS (4)
  - ANXIETY [None]
  - INCREASED APPETITE [None]
  - INSOMNIA [None]
  - NAUSEA [None]
